FAERS Safety Report 7837876-1 (Version None)
Quarter: 2011Q4

REPORT INFORMATION
  Report Type: 
  Country: None (occurrence: None)
  Receive Date: 20111024
  Receipt Date: 20111021
  Transmission Date: 20120403
  Serious: No
  Sender: FDA-Public Use
  Company Number: US-BAYER-2011-102928

PATIENT
  Sex: Female
  Weight: 126.98 kg

DRUGS (2)
  1. ULTRAVIST 150 [Suspect]
     Indication: COMPUTERISED TOMOGRAM
     Dosage: 100 ML, UNK
     Route: 042
     Dates: start: 20111021
  2. HYDROCHLOROTHIAZIDE [Concomitant]

REACTIONS (2)
  - URTICARIA [None]
  - PRURITUS GENERALISED [None]
